FAERS Safety Report 6299795-4 (Version None)
Quarter: 2009Q3

REPORT INFORMATION
  Report Type: 
  Country: None (occurrence: None)
  Receive Date: 20090806
  Receipt Date: 20090727
  Transmission Date: 20100115
  Serious: Yes (Hospitalization)
  Sender: FDA-Public Use
  Company Number: FR-ELI_LILLY_AND_COMPANY-FR200906002855

PATIENT
  Age: 69 Year
  Sex: Female
  Weight: 62 kg

DRUGS (8)
  1. ZYPREXA [Suspect]
     Indication: DELUSIONAL DISORDER, UNSPECIFIED TYPE
     Dosage: 5 MG, DAILY (1/D)
     Route: 048
     Dates: start: 20090429, end: 20090504
  2. XANAX [Concomitant]
     Indication: ANXIETY
     Dosage: 3 MG, DAILY (1/D)
     Route: 048
     Dates: start: 20090405
  3. TERCIAN [Concomitant]
     Indication: ANXIETY
     Dosage: 40 D/F, DAILY (1/D)
     Route: 048
     Dates: start: 20090405
  4. STILNOX [Concomitant]
     Indication: INSOMNIA
     Dosage: 7.5 MG, DAILY (1/D)
     Route: 048
     Dates: start: 20090405
  5. THERALENE [Concomitant]
     Dosage: UNK, UNK
     Route: 048
  6. SOTALOL HCL [Concomitant]
     Indication: HYPERTENSION
     Dosage: 80 MG, DAILY (1/D)
     Route: 048
     Dates: start: 20090409
  7. SULFALENE [Concomitant]
     Indication: APTYALISM
     Route: 048
     Dates: start: 20090423
  8. SEROPLEX [Concomitant]
     Indication: DEPRESSION
     Dosage: 10 MG, DAILY (1/D)
     Route: 048
     Dates: start: 20090405

REACTIONS (3)
  - CONFUSIONAL STATE [None]
  - HEPATOCELLULAR INJURY [None]
  - PYREXIA [None]
